FAERS Safety Report 16625303 (Version 1)
Quarter: 2019Q3

REPORT INFORMATION
  Report Type: Spontaneous
  Country: HU (occurrence: HU)
  Receive Date: 20190724
  Receipt Date: 20190724
  Transmission Date: 20191004
  Serious: Yes (Hospitalization)
  Sender: FDA-Public Use
  Company Number: HU-AMREGENT-20191571

PATIENT
  Age: 66 Year
  Sex: Female

DRUGS (19)
  1. MOXIFLOXACIN. [Suspect]
     Active Substance: MOXIFLOXACIN
     Dosage: UNKNOWN
     Route: 065
  2. COLISTIN [Suspect]
     Active Substance: COLISTIN
     Dosage: UNKNOWN
     Route: 065
  3. IMMUNOGLOBULINS (IMMUNOGLOBULINS HUMAN NORMAL) [Suspect]
     Active Substance: HUMAN IMMUNOGLOBULIN G
     Dosage: UNKNOWN
     Route: 042
  4. TIGECYCLINE. [Suspect]
     Active Substance: TIGECYCLINE
     Dosage: UNKNOWN
     Route: 065
  5. VANCOMYCIN [Suspect]
     Active Substance: VANCOMYCIN
     Dosage: UNKNOWN
     Route: 065
  6. METHYLPREDNISOLONE. [Suspect]
     Active Substance: METHYLPREDNISOLONE
     Dosage: 125 MG
     Route: 051
  7. VENOFER [Suspect]
     Active Substance: IRON SUCROSE
     Dosage: UNKNOWN
     Route: 042
  8. IMMUNOGLOBULINS IGM-BASE [Suspect]
     Active Substance: HUMAN IMMUNOGLOBULIN M
     Dosage: UNKNOWN
     Route: 065
  9. METHOTREXATE. [Suspect]
     Active Substance: METHOTREXATE
     Dosage: 10 MG
     Route: 065
  10. TEICOPLANIN [Suspect]
     Active Substance: TEICOPLANIN
     Dosage: UNKNOWN
     Route: 065
  11. CEFTRIAXONE. [Suspect]
     Active Substance: CEFTRIAXONE
     Dosage: UNKNOWN
     Route: 065
  12. FERINJECT [Suspect]
     Active Substance: FERRIC CARBOXYMALTOSE
     Dosage: UNKNOWN
     Route: 042
  13. MALTOFER (IRON POLYMALTOSE) [Suspect]
     Active Substance: IRON POLYMALTOSE
     Dosage: UNKNOWN
     Route: 048
  14. CLARITHROMYCIN. [Suspect]
     Active Substance: CLARITHROMYCIN
     Dosage: UNKNOWN
     Route: 065
  15. ANIDULAFUNGIN [Suspect]
     Active Substance: ANIDULAFUNGIN
     Dosage: UNKNOWN
     Route: 065
  16. MEROPENEM. [Suspect]
     Active Substance: MEROPENEM
     Dosage: UNKNOWN
     Route: 065
  17. METRONIDAZOLE. [Suspect]
     Active Substance: METRONIDAZOLE
     Dosage: UNKNOWN
     Route: 065
  18. ACETYLSALICYLIC ACID [Suspect]
     Active Substance: ASPIRIN
     Dosage: UNKNOWN
     Route: 065
  19. FOLIC ACID. [Suspect]
     Active Substance: FOLIC ACID
     Dosage: UNKNOWN
     Route: 065

REACTIONS (11)
  - Anaemia [Unknown]
  - Staphylococcus test [Recovered/Resolved]
  - Haemodynamic instability [Recovered/Resolved]
  - Impaired healing [Recovered/Resolved with Sequelae]
  - Vomiting [Unknown]
  - Diarrhoea [Unknown]
  - Haemostasis [Recovered/Resolved]
  - Morganella infection [Recovered/Resolved]
  - Neutropenia [Unknown]
  - Wound haemorrhage [Recovered/Resolved]
  - Thrombocytopenia [Unknown]

NARRATIVE: CASE EVENT DATE: 20190116
